FAERS Safety Report 18912444 (Version 2)
Quarter: 2021Q2

REPORT INFORMATION
  Report Type: Spontaneous
  Country: CH (occurrence: CH)
  Receive Date: 20210218
  Receipt Date: 20210408
  Transmission Date: 20210717
  Serious: Yes (Other)
  Sender: FDA-Public Use
  Company Number: CH-ALLERGAN-2106784US

PATIENT
  Sex: Male
  Weight: 66 kg

DRUGS (1)
  1. ESCITALOPRAM OXALATE ? BP [Suspect]
     Active Substance: ESCITALOPRAM OXALATE
     Indication: DEPRESSION
     Dosage: 5 GTT, QD
     Route: 048
     Dates: start: 20210127, end: 20210129

REACTIONS (2)
  - Erectile dysfunction [Not Recovered/Not Resolved]
  - Nausea [Recovered/Resolved]

NARRATIVE: CASE EVENT DATE: 20210128
